FAERS Safety Report 6713989-2 (Version None)
Quarter: 2010Q2

REPORT INFORMATION
  Report Type: 
  Country: None (occurrence: None)
  Receive Date: 20100506
  Receipt Date: 20100427
  Transmission Date: 20101027
  Serious: Yes (Hospitalization)
  Sender: FDA-Public Use
  Company Number: RU-PFIZER INC-2010052641

PATIENT
  Age: 43 Year
  Sex: Female

DRUGS (2)
  1. LYRICA [Suspect]
     Indication: OSTEOCHONDROSIS
     Dosage: UNK, EVERY 12 HOURS
     Route: 048
     Dates: start: 20090901
  2. MOVALIS [Concomitant]
     Indication: OSTEOCHONDROSIS
     Dosage: UNK
     Route: 048
     Dates: start: 20090901

REACTIONS (4)
  - BRADYCARDIA [None]
  - DRUG TOXICITY [None]
  - HYPOTENSION [None]
  - SOPOR [None]
